FAERS Safety Report 9182684 (Version 5)
Quarter: 2013Q4

REPORT INFORMATION
  Report Type: Spontaneous
  Country: JP (occurrence: JP)
  Receive Date: 20130322
  Receipt Date: 20131209
  Transmission Date: 20140711
  Serious: Yes (Hospitalization)
  Sender: FDA-Public Use
  Company Number: JP-ELI_LILLY_AND_COMPANY-JP201303004540

PATIENT
  Sex: 0

DRUGS (12)
  1. CYMBALTA [Suspect]
     Indication: PANIC DISORDER
     Dosage: 60 MG, PRN
     Route: 064
     Dates: end: 20130306
  2. CYMBALTA [Suspect]
     Indication: PANIC DISORDER
     Dosage: 60 MG, PRN
     Route: 064
     Dates: end: 20130306
  3. SEDIEL [Concomitant]
     Dosage: UNK, PRN
     Route: 064
  4. SEDIEL [Concomitant]
     Dosage: UNK, PRN
     Route: 064
  5. MEICELIN [Concomitant]
     Indication: INFECTION PROPHYLAXIS
     Dosage: UNK UNK, QD
     Route: 064
     Dates: start: 20130306, end: 20130306
  6. MEICELIN [Concomitant]
     Indication: INFECTION PROPHYLAXIS
     Dosage: UNK UNK, QD
     Route: 064
     Dates: start: 20130306, end: 20130306
  7. FENTANYL [Concomitant]
     Indication: EPIDURAL ANAESTHESIA
     Dosage: UNK
     Route: 064
     Dates: start: 20130306, end: 20130306
  8. FENTANYL [Concomitant]
     Indication: EPIDURAL ANAESTHESIA
     Dosage: UNK
     Route: 064
     Dates: start: 20130306, end: 20130306
  9. ANAPEINE [Concomitant]
     Indication: EPIDURAL ANAESTHESIA
     Dosage: UNK
     Route: 064
     Dates: start: 20130306, end: 20130306
  10. ANAPEINE [Concomitant]
     Indication: EPIDURAL ANAESTHESIA
     Dosage: UNK
     Route: 064
     Dates: start: 20130306, end: 20130306
  11. ATONIN-O [Concomitant]
     Indication: LABOUR INDUCTION
     Dosage: UNK
     Route: 064
     Dates: start: 20130306, end: 20130306
  12. ATONIN-O [Concomitant]
     Indication: LABOUR INDUCTION
     Dosage: UNK
     Route: 064
     Dates: start: 20130306, end: 20130306

REACTIONS (2)
  - Apnoea [Recovered/Resolved]
  - Foetal exposure during pregnancy [Recovered/Resolved]
